FAERS Safety Report 7926282-7 (Version None)
Quarter: 2011Q4

REPORT INFORMATION
  Report Type: 
  Country: None (occurrence: None)
  Receive Date: 20111118
  Receipt Date: 20111110
  Transmission Date: 20120403
  Serious: Yes (Hospitalization)
  Sender: FDA-Public Use
  Company Number: DE-BIOGENIDEC-2011BI043093

PATIENT
  Age: 40 Year
  Sex: Female
  Weight: 87 kg

DRUGS (1)
  1. AVONEX [Suspect]
     Indication: MULTIPLE SCLEROSIS
     Route: 030
     Dates: start: 20110501

REACTIONS (3)
  - DIABETES MELLITUS [None]
  - MULTIPLE SCLEROSIS RELAPSE [None]
  - HYPERTENSION [None]
